FAERS Safety Report 6396613-0 (Version None)
Quarter: 2009Q4

REPORT INFORMATION
  Report Type: 
  Country: None (occurrence: None)
  Receive Date: 20091012
  Receipt Date: 20090813
  Transmission Date: 20100525
  Serious: No
  Sender: FDA-Public Use
  Company Number: US-ASTRAZENECA-2009SE08009

PATIENT
  Sex: Female

DRUGS (1)
  1. SYMBICORT [Suspect]
     Dosage: TOTAL DAILY DOSE 740MG
     Route: 055
     Dates: start: 20080601

REACTIONS (2)
  - CHEST DISCOMFORT [None]
  - OROPHARYNGEAL PAIN [None]
